FAERS Safety Report 8589246-9 (Version None)
Quarter: 2012Q3

REPORT INFORMATION
  Report Type: 
  Country: None (occurrence: None)
  Receive Date: 20120731
  Receipt Date: 20120711
  Transmission Date: 20120928
  Serious: Yes (Other)
  Sender: FDA-Public Use
  Company Number: US-2011-10452

PATIENT
  Sex: Female

DRUGS (12)
  1. FLUDARA [Concomitant]
  2. NIFEDIPINE [Concomitant]
  3. NIZATIDINE [Concomitant]
  4. ALLOPURINOL [Concomitant]
  5. ANTIHYMOCYTE IMMUNOGLOBULIN (RABBIT) (ANTITHYMOCYTE IMMUNOGLOBULIN (RA [Concomitant]
  6. METHYLPREDNISOLONE [Concomitant]
  7. BUSULFEX [Suspect]
     Indication: STEM CELL TRANSPLANT
     Dosage: 0.8 MG/KG, QID, INTRAVENOUS
     Route: 042
     Dates: start: 20110619, end: 20110622
  8. BIOFERMIN (BACILLUS SUBTILIS, LACTOBACILLUS ACIDOPHILUS, STREPTOCOCCUS [Concomitant]
  9. SULFAMETHOXAZOLE AND TRIMETHOPRIM [Concomitant]
  10. DEPAKENE [Concomitant]
  11. ZOVIRAX [Concomitant]
  12. POLYMIXIN B SULFATE (POLYMIXIN B SULFATE) [Concomitant]

REACTIONS (6)
  - ALTERED STATE OF CONSCIOUSNESS [None]
  - MALAISE [None]
  - DISORIENTATION [None]
  - STATUS EPILEPTICUS [None]
  - SOMNOLENCE [None]
  - URINARY INCONTINENCE [None]
